FAERS Safety Report 7251939-3 (Version None)
Quarter: 2011Q1

REPORT INFORMATION
  Report Type: 
  Country: None (occurrence: None)
  Receive Date: 20110128
  Receipt Date: 20100426
  Transmission Date: 20110831
  Serious: No
  Sender: FDA-Public Use
  Company Number: US-ABBOTT-10P-163-0618574-00

PATIENT
  Sex: Female

DRUGS (4)
  1. HUMIRA [Suspect]
     Indication: CROHN'S DISEASE
  2. METHOTREXATE [Concomitant]
     Indication: SARCOIDOSIS
     Dates: start: 19990101
  3. HUMIRA [Suspect]
     Indication: SARCOIDOSIS
     Route: 058
     Dates: start: 20091009, end: 20100305
  4. METHOTREXATE [Concomitant]
     Indication: CROHN'S DISEASE

REACTIONS (3)
  - BONE PAIN [None]
  - MYALGIA [None]
  - FATIGUE [None]
